FAERS Safety Report 15118167 (Version 1)
Quarter: 2018Q3

REPORT INFORMATION
  Report Type: Spontaneous
  Country: US (occurrence: US)
  Receive Date: 20180707
  Receipt Date: 20180707
  Transmission Date: 20181010
  Serious: Yes (Other)
  Sender: FDA-Public Use
  Company Number: US-NOVOPROD-608603

PATIENT
  Age: 51 Year
  Sex: Female

DRUGS (1)
  1. LEVEMIR [Suspect]
     Active Substance: INSULIN DETEMIR
     Indication: TYPE 1 DIABETES MELLITUS
     Dosage: UNK, QD
     Route: 058
     Dates: start: 20180427, end: 20180614

REACTIONS (2)
  - Cognitive disorder [Unknown]
  - Mental disorder [Unknown]

NARRATIVE: CASE EVENT DATE: 2018
